FAERS Safety Report 9401145 (Version 4)
Quarter: 2014Q1

REPORT INFORMATION
  Report Type: Spontaneous
  Country: US (occurrence: US)
  Receive Date: 20130715
  Receipt Date: 20140310
  Transmission Date: 20141002
  Serious: No
  Sender: FDA-Public Use
  Company Number: US-PFIZER INC-2013201674

PATIENT
  Age: 68 Year
  Sex: Female

DRUGS (5)
  1. LYRICA [Suspect]
     Dosage: 25 MG, 1X/DAY
     Route: 048
  2. DIFLUCAN [Concomitant]
     Dosage: UNK
  3. BENICAR HCT [Concomitant]
     Dosage: UNK
  4. LIBRIUM [Concomitant]
     Dosage: UNK
  5. PROMETRIUM [Concomitant]
     Dosage: UNK

REACTIONS (2)
  - Local swelling [Unknown]
  - Pain in extremity [Unknown]
